FAERS Safety Report 6268998-7 (Version None)
Quarter: 2009Q3

REPORT INFORMATION
  Report Type: 
  Country: None (occurrence: None)
  Receive Date: 20090715
  Receipt Date: 20090708
  Transmission Date: 20100115
  Serious: Yes (Other)
  Sender: FDA-Public Use
  Company Number: A0795898A

PATIENT
  Sex: Female

DRUGS (1)
  1. LAMICTAL [Suspect]
     Indication: BIPOLAR DISORDER
     Dosage: 50MG PER DAY
     Route: 048
     Dates: start: 20090611

REACTIONS (5)
  - APHASIA [None]
  - COORDINATION ABNORMAL [None]
  - NAUSEA [None]
  - PETECHIAE [None]
  - VOMITING [None]
